FAERS Safety Report 8889921 (Version 1)
Quarter: 2012Q4

REPORT INFORMATION
  Report Type: 
  Country: US (occurrence: US)
  Receive Date: 20121107
  Receipt Date: 20121107
  Transmission Date: 20130627
  Serious: No
  Sender: FDA-Public Use
  Company Number: US-PFIZER INC-2012277777

PATIENT
  Age: 78 Year
  Sex: Male
  Weight: 78.01 kg

DRUGS (3)
  1. LYRICA [Suspect]
     Dosage: UNK, 1x/day
     Route: 048
     Dates: start: 201210
  2. ATENOLOL [Concomitant]
     Indication: HYPERTENSION
     Dosage: UNK
  3. LIPITOR [Concomitant]
     Indication: BLOOD CHOLESTEROL ABNORMAL
     Dosage: UNK

REACTIONS (1)
  - Pruritus [Not Recovered/Not Resolved]
